FAERS Safety Report 16623517 (Version 3)
Quarter: 2019Q4

REPORT INFORMATION
  Report Type: Report from Study
  Country: FR (occurrence: FR)
  Receive Date: 20190724
  Receipt Date: 20191224
  Transmission Date: 20200122
  Serious: Yes (Other)
  Sender: FDA-Public Use
  Company Number: FR-HBP-2019FR018664

PATIENT
  Age: 46 Year
  Sex: Male

DRUGS (2)
  1. VALCHLOR [Suspect]
     Active Substance: MECHLORETHAMINE
     Indication: CUTANEOUS T-CELL LYMPHOMA STAGE I
     Dosage: UNK, QD
     Route: 003
     Dates: start: 20180125
  2. VALCHLOR [Suspect]
     Active Substance: MECHLORETHAMINE
     Dosage: UNK, QOD
     Route: 003
     Dates: end: 20190704

REACTIONS (7)
  - Malignant neoplasm progression [Unknown]
  - Therapy partial responder [Unknown]
  - Drug ineffective [Unknown]
  - Application site pruritus [Recovered/Resolved]
  - Dermatitis [Recovered/Resolved]
  - Pruritus [Recovered/Resolved]
  - Dermatitis bullous [Recovered/Resolved]

NARRATIVE: CASE EVENT DATE: 20180125
